FAERS Safety Report 6923830-0 (Version None)
Quarter: 2010Q3

REPORT INFORMATION
  Report Type: 
  Country: None (occurrence: None)
  Receive Date: 20100813
  Receipt Date: 20090822
  Transmission Date: 20110219
  Serious: No
  Sender: FDA-Public Use
  Company Number: US-BRISTOL-MYERS SQUIBB COMPANY-14745228

PATIENT
  Age: 43 Year
  Sex: Male
  Weight: 84 kg

DRUGS (8)
  1. REYATAZ [Suspect]
     Indication: HIV INFECTION
  2. NORVIR [Concomitant]
  3. TRUVADA [Concomitant]
  4. BACTRIM [Concomitant]
  5. NEURONTIN [Concomitant]
  6. ELAVIL [Concomitant]
  7. PERCOCET [Concomitant]
  8. RANITIDINE [Concomitant]

REACTIONS (3)
  - DIARRHOEA [None]
  - MIGRAINE [None]
  - PROCTALGIA [None]
